FAERS Safety Report 9224813 (Version 1)
Quarter: 2013Q2

REPORT INFORMATION
  Report Type: Spontaneous
  Country: US (occurrence: None)
  Receive Date: 20130409
  Receipt Date: 20130409
  Transmission Date: 20140414
  Serious: Yes (Hospitalization)
  Sender: FDA-Public Use
  Company Number: VAL_02278_2013

PATIENT
  Age: 64 Year
  Sex: Female

DRUGS (3)
  1. CALCITRIOL [Suspect]
     Indication: VITAMIN SUPPLEMENTATION
     Dosage: (DF)?
  2. CALCIUM CARBONATE [Suspect]
     Indication: MINERAL SUPPLEMENTATION
     Dosage: 3X DAILY EVERY OTHER DAY, 2X DAILY EVERY OTHER DAY, (DF) 40 YRS. UNTIL NOT CONT.
     Dates: start: 201106, end: 201106
  3. RETINOL (UNKNOWN) [Concomitant]

REACTIONS (8)
  - Hypoaesthesia oral [None]
  - Hypoaesthesia [None]
  - Muscle spasms [None]
  - Overdose [None]
  - Blood calcium decreased [None]
  - Paraesthesia [None]
  - Muscle tightness [None]
  - Muscle twitching [None]
